FAERS Safety Report 23338058 (Version 1)
Quarter: 2023Q4

REPORT INFORMATION
  Report Type: Spontaneous
  Country: US (occurrence: US)
  Receive Date: 20231226
  Receipt Date: 20231226
  Transmission Date: 20240109
  Serious: Yes (Other)
  Sender: FDA-Public Use
  Company Number: US-BLUEBIRD BIO-US-BBB-23-00082

PATIENT

DRUGS (1)
  1. ZYNTEGLO [Suspect]
     Active Substance: BETIBEGLOGENE AUTOTEMCEL
     Indication: Thalassaemia
     Dosage: UNK, SINGLE
     Route: 042
     Dates: start: 202306, end: 202306

REACTIONS (15)
  - Cytopenia [Unknown]
  - Haematemesis [Unknown]
  - Immune system disorder [Unknown]
  - Productive cough [Unknown]
  - Epistaxis [Recovered/Resolved]
  - Epistaxis [Recovered/Resolved]
  - Contusion [Unknown]
  - Increased viscosity of upper respiratory secretion [Unknown]
  - Tooth loss [Unknown]
  - Confusional state [Unknown]
  - Gastrointestinal disorder [Unknown]
  - Pyrexia [Unknown]
  - Taste disorder [Unknown]
  - Pruritus [Unknown]
  - Alopecia [Unknown]

NARRATIVE: CASE EVENT DATE: 20230101
